FAERS Safety Report 10088063 (Version 2)
Quarter: 2014Q2

REPORT INFORMATION
  Report Type: Spontaneous
  Country: JP (occurrence: JP)
  Receive Date: 20140421
  Receipt Date: 20140430
  Transmission Date: 20141212
  Serious: Yes (Hospitalization)
  Sender: FDA-Public Use
  Company Number: JP-ROCHE-1382293

PATIENT
  Age: 94 Year
  Sex: Male
  Weight: 40 kg

DRUGS (15)
  1. MIRCERA [Suspect]
     Indication: NEPHROGENIC ANAEMIA
     Route: 058
     Dates: start: 20120703, end: 20121002
  2. MIRCERA [Suspect]
     Indication: NEPHROGENIC ANAEMIA
     Route: 058
     Dates: start: 20121030
  3. ZYLORIC [Concomitant]
     Indication: RENAL FAILURE CHRONIC
     Dosage: OTHER PURPOSES: RENAL ANEMIA
     Route: 048
     Dates: start: 200302
  4. HARNAL D [Concomitant]
     Route: 048
     Dates: start: 20051109
  5. DIART [Concomitant]
     Route: 048
     Dates: start: 20070912
  6. AVOLVE [Concomitant]
     Route: 048
     Dates: start: 20110920
  7. ARTIST [Concomitant]
     Route: 048
     Dates: start: 20120124
  8. ROCALTROL [Concomitant]
     Route: 048
     Dates: start: 20120703
  9. ITOROL [Concomitant]
     Route: 048
     Dates: start: 200302
  10. REBAMIPIDE [Concomitant]
     Route: 048
     Dates: start: 20100928
  11. URSO [Concomitant]
     Route: 048
     Dates: start: 20060531
  12. LANSOPRAZOLE [Concomitant]
     Route: 048
     Dates: start: 20111122
  13. LENDORMIN D [Concomitant]
     Route: 048
     Dates: start: 20110202
  14. BESOFTEN (HEPARINOIDS) [Concomitant]
     Dosage: DOSAGE IS UNCERTAIN.
     Route: 061
     Dates: start: 20101026
  15. KETOPROFEN [Concomitant]
     Dosage: DRUG REPORTED AS PATELL
     Route: 061
     Dates: start: 20110624

REACTIONS (4)
  - Pyrexia [Recovered/Resolved]
  - Dyspnoea [Recovered/Resolved]
  - Hypertension [Recovered/Resolved]
  - Urinary tract infection [Recovered/Resolved]
